FAERS Safety Report 7124913-5 (Version None)
Quarter: 2010Q4

REPORT INFORMATION
  Report Type: 
  Country: None (occurrence: None)
  Receive Date: 20101129
  Receipt Date: 20101115
  Transmission Date: 20110411
  Serious: Yes (Other)
  Sender: FDA-Public Use
  Company Number: US-ELI_LILLY_AND_COMPANY-US201011005303

PATIENT
  Age: 65 Year
  Sex: Male

DRUGS (4)
  1. EFFIENT [Suspect]
     Dosage: 60 MG, LOADING DOSE
     Route: 065
     Dates: start: 20100901
  2. EFFIENT [Suspect]
     Dosage: 10 MG, OTHER
     Route: 065
  3. INTEGRILIN [Concomitant]
     Dosage: UNK, UNKNOWN
     Route: 065
  4. ASPIRIN [Concomitant]
     Dosage: UNK, UNKNOWN
     Route: 065

REACTIONS (3)
  - DEEP VEIN THROMBOSIS [None]
  - MEDICAL DEVICE COMPLICATION [None]
  - VESSEL PUNCTURE SITE THROMBOSIS [None]
